FAERS Safety Report 15922854 (Version 1)
Quarter: 2019Q1

REPORT INFORMATION
  Report Type: Spontaneous
  Country: US (occurrence: US)
  Receive Date: 20190205
  Receipt Date: 20190205
  Transmission Date: 20190417
  Serious: Yes (Hospitalization)
  Sender: FDA-Public Use
  Company Number: None

PATIENT
  Sex: Male

DRUGS (27)
  1. GENERLAC [Concomitant]
     Active Substance: LACTULOSE
  2. XARELTO [Concomitant]
     Active Substance: RIVAROXABAN
  3. NEFAZODONE [Concomitant]
     Active Substance: NEFAZODONE
  4. OXYCODONE AND ACETAMINOPHEN [Concomitant]
     Active Substance: ACETAMINOPHEN\OXYCODONE HYDROCHLORIDE
  5. ONDANSETRON [Concomitant]
     Active Substance: ONDANSETRON
  6. PREDNISONE. [Concomitant]
     Active Substance: PREDNISONE
  7. TRAZODONE [Concomitant]
     Active Substance: TRAZODONE HYDROCHLORIDE
  8. PAZEO [Concomitant]
     Active Substance: OLOPATADINE HYDROCHLORIDE
  9. FLUVOXAMINE [Concomitant]
     Active Substance: FLUVOXAMINE
  10. LIDOCAINE. [Concomitant]
     Active Substance: LIDOCAINE
  11. TOLTERODINE [Concomitant]
     Active Substance: TOLTERODINE
  12. CEPHALEXIN. [Concomitant]
     Active Substance: CEPHALEXIN
  13. CEFTRIAXONE. [Concomitant]
     Active Substance: CEFTRIAXONE
  14. SMZ/TMP [Concomitant]
     Active Substance: SULFAMETHOXAZOLE\TRIMETHOPRIM
  15. LEVOFLOXACIN. [Concomitant]
     Active Substance: LEVOFLOXACIN
  16. SERTRALINE [Concomitant]
     Active Substance: SERTRALINE HYDROCHLORIDE
  17. CIALIS [Concomitant]
     Active Substance: TADALAFIL
  18. VALACYCLOVIR [Concomitant]
     Active Substance: VALACYCLOVIR HYDROCHLORIDE
  19. ATORVASTATIN [Concomitant]
     Active Substance: ATORVASTATIN
  20. FLUOCIN ACET [Concomitant]
  21. CIPROFLOXACIN. [Concomitant]
     Active Substance: CIPROFLOXACIN
  22. DICLOFENAC [Concomitant]
     Active Substance: DICLOFENAC
  23. MYCOPHENOLATE [Suspect]
     Active Substance: MYCOPHENOLIC ACID
     Indication: PRODUCT USED FOR UNKNOWN INDICATION
     Route: 048
     Dates: start: 20181204
  24. METFORMIN [Concomitant]
     Active Substance: METFORMIN HYDROCHLORIDE
  25. LEVEMIR [Concomitant]
     Active Substance: INSULIN DETEMIR
  26. FLUCONAZOLE. [Concomitant]
     Active Substance: FLUCONAZOLE
  27. VIAGRA [Concomitant]
     Active Substance: SILDENAFIL CITRATE

REACTIONS (1)
  - Herpes zoster [None]
